FAERS Safety Report 5138646-8 (Version None)
Quarter: 2006Q4

REPORT INFORMATION
  Report Type: 
  Country: None (occurrence: None)
  Receive Date: 20061030
  Receipt Date: 20061023
  Transmission Date: 20070319
  Serious: Yes (Other)
  Sender: FDA-Public Use
  Company Number: DE-GLAXOSMITHKLINE-D0051280B

PATIENT
  Age: 12 Week

DRUGS (1)
  1. LAMICTAL [Suspect]
     Indication: EPILEPSY
     Route: 048

REACTIONS (3)
  - BRADYARRHYTHMIA [None]
  - DRUG EXPOSURE VIA BREAST MILK [None]
  - SUPRAVENTRICULAR EXTRASYSTOLES [None]
